FAERS Safety Report 21913177 (Version 1)
Quarter: 2023Q1

REPORT INFORMATION
  Report Type: Spontaneous
  Country: US (occurrence: US)
  Receive Date: 20230125
  Receipt Date: 20230125
  Transmission Date: 20230418
  Serious: No
  Sender: FDA-Public Use
  Company Number: US-ALLERGAN-2207205US

PATIENT
  Sex: Female

DRUGS (6)
  1. BOTOX [Suspect]
     Active Substance: ONABOTULINUMTOXINA
     Indication: Migraine
     Dosage: UNK UNK, SINGLE
  2. QULIPTA [Concomitant]
     Active Substance: ATOGEPANT
     Indication: Migraine
     Dosage: UNK
  3. UBRELVY [Concomitant]
     Active Substance: UBROGEPANT
  4. ACETAMINOPHEN [Concomitant]
     Active Substance: ACETAMINOPHEN
     Dosage: UNK, PRN
  5. BUTALBITAL [Concomitant]
     Active Substance: BUTALBITAL
     Dosage: UNK, PRN
  6. CAFFEINE [Concomitant]
     Active Substance: CAFFEINE
     Dosage: UNK, PRN

REACTIONS (2)
  - COVID-19 [Unknown]
  - Drug ineffective [Unknown]
